FAERS Safety Report 7158925-2 (Version None)
Quarter: 2010Q4

REPORT INFORMATION
  Report Type: 
  Country: None (occurrence: None)
  Receive Date: 20101130
  Receipt Date: 20101115
  Transmission Date: 20110411
  Serious: Yes (Other)
  Sender: FDA-Public Use
  Company Number: DSM-2010-01703

PATIENT
  Age: 50 Year
  Sex: Male

DRUGS (1)
  1. VOCADO (OLMESARTAN MEDOXOMIL, AMLODIPINE BESILATE) (OLMESARTAN MEDOXOM [Suspect]
     Indication: HYPERTENSION
     Dosage: 20.5 MG, ORAL
     Route: 048
     Dates: start: 20101010, end: 20101104

REACTIONS (1)
  - BLOOD PRESSURE DECREASED [None]
